FAERS Safety Report 21863864 (Version 1)
Quarter: 2023Q1

REPORT INFORMATION
  Report Type: Spontaneous
  Country: TN (occurrence: TN)
  Receive Date: 20230116
  Receipt Date: 20230116
  Transmission Date: 20230418
  Serious: Yes (Hospitalization, Other)
  Sender: FDA-Public Use
  Company Number: TN-SUN PHARMACEUTICAL INDUSTRIES LTD-2023R1-372956

PATIENT
  Age: 27 Year

DRUGS (2)
  1. CHLORPROMAZINE [Suspect]
     Active Substance: CHLORPROMAZINE
     Indication: Hallucination
     Dosage: 100 MILLIGRAM
     Route: 048
  2. RISPERIDONE [Concomitant]
     Active Substance: RISPERIDONE
     Indication: Hallucination
     Dosage: 4 MILLIGRAM
     Route: 048

REACTIONS (2)
  - Angioedema [Recovering/Resolving]
  - Suicide attempt [Unknown]
